FAERS Safety Report 9684927 (Version 5)
Quarter: 2014Q1

REPORT INFORMATION
  Report Type: Spontaneous
  Country: US (occurrence: US)
  Receive Date: 20131113
  Receipt Date: 20140207
  Transmission Date: 20141002
  Serious: Yes (Hospitalization)
  Sender: FDA-Public Use
  Company Number: US-BIOGENIDEC-2013BI106569

PATIENT
  Age: 51 Year
  Sex: Male

DRUGS (2)
  1. TYSABRI [Suspect]
     Indication: MULTIPLE SCLEROSIS
     Route: 042
     Dates: start: 20111116, end: 20121023
  2. TYSABRI [Suspect]
     Indication: MULTIPLE SCLEROSIS
     Route: 042
     Dates: start: 20121204

REACTIONS (13)
  - Joint hyperextension [Recovered/Resolved]
  - Balance disorder [Unknown]
  - Pain [Unknown]
  - Increased upper airway secretion [Unknown]
  - Dysphagia [Unknown]
  - Poor venous access [Unknown]
  - Fall [Recovered/Resolved]
  - Lower limb fracture [Recovered/Resolved]
  - Ligament sprain [Recovered/Resolved]
  - Pain in extremity [Unknown]
  - Malaise [Not Recovered/Not Resolved]
  - Depression suicidal [Not Recovered/Not Resolved]
  - Muscle atrophy [Not Recovered/Not Resolved]
